FAERS Safety Report 8305832-5 (Version None)
Quarter: 2012Q2

REPORT INFORMATION
  Report Type: 
  Country: None (occurrence: None)
  Receive Date: 20120423
  Receipt Date: 20120418
  Transmission Date: 20120825
  Serious: Yes (Life-Threatening, Hospitalization, Other)
  Sender: FDA-Public Use
  Company Number: CA-NAPPMUNDI-CAN-2012-0002872

PATIENT
  Sex: Male

DRUGS (2)
  1. OXYNEO 20 MG [Suspect]
     Indication: PRODUCT USED FOR UNKNOWN INDICATION
     Dosage: 20 MG, BID
     Route: 065
     Dates: start: 20120315
  2. OXYCONTIN [Suspect]
     Indication: PRODUCT USED FOR UNKNOWN INDICATION
     Dosage: 20 MG, BID
     Route: 065

REACTIONS (5)
  - LUNG NEOPLASM MALIGNANT [None]
  - PAIN [None]
  - DYSPEPSIA [None]
  - HEPATIC NEOPLASM MALIGNANT NON-RESECTABLE [None]
  - ABDOMINAL PAIN UPPER [None]
